FAERS Safety Report 14284052 (Version 2)
Quarter: 2018Q4

REPORT INFORMATION
  Report Type: Spontaneous
  Country: US (occurrence: US)
  Receive Date: 20171214
  Receipt Date: 20181024
  Transmission Date: 20190204
  Serious: Yes (Life-Threatening, Hospitalization, Other)
  Sender: FDA-Public Use
  Company Number: US-STRIDES ARCOLAB LIMITED-2017SP014616

PATIENT
  Age: 52 Year
  Sex: Male

DRUGS (3)
  1. VANCOMYCIN [Suspect]
     Active Substance: VANCOMYCIN
     Indication: SEPSIS
     Dosage: INTERMITTENT INFUSION
     Route: 042
  2. VANCOMYCIN [Suspect]
     Active Substance: VANCOMYCIN
     Indication: STAPHYLOCOCCAL INFECTION
     Dosage: UNK
     Route: 042
  3. PIPERACILLIN/TAZOBACTAM [Concomitant]
     Active Substance: PIPERACILLIN SODIUM\TAZOBACTAM SODIUM
     Indication: SEPSIS
     Dosage: UNK
     Route: 065

REACTIONS (14)
  - Human herpesvirus 6 infection [Recovered/Resolved]
  - Swelling face [Recovered/Resolved]
  - Bandaemia [Recovered/Resolved]
  - Drug reaction with eosinophilia and systemic symptoms [Recovered/Resolved]
  - Mental status changes [Recovered/Resolved]
  - Epstein-Barr virus infection [Recovered/Resolved]
  - Rash maculo-papular [Recovered/Resolved]
  - Leukocytosis [Recovered/Resolved]
  - Lymphadenopathy [Recovered/Resolved]
  - Tachycardia [Recovered/Resolved]
  - Pyrexia [Recovered/Resolved]
  - Rash pruritic [Recovered/Resolved]
  - Blood creatinine increased [Recovered/Resolved]
  - Liver function test increased [Recovered/Resolved]
